FAERS Safety Report 8477791-6 (Version None)
Quarter: 2012Q2

REPORT INFORMATION
  Report Type: 
  Country: None (occurrence: None)
  Receive Date: 20120626
  Receipt Date: 20120626
  Transmission Date: 20120825
  Serious: Yes (Life-Threatening, Hospitalization)
  Sender: FDA-Public Use
  Company Number: None

PATIENT
  Age: 58 Year
  Sex: Male
  Weight: 147.8 kg

DRUGS (1)
  1. CETUXIMAB [Suspect]
     Indication: NEOPLASM MALIGNANT
     Dosage: 1050 MG ONCE IV
     Route: 042
     Dates: start: 20111207, end: 20111207

REACTIONS (3)
  - ANAPHYLACTIC REACTION [None]
  - RESPIRATORY ARREST [None]
  - INFUSION RELATED REACTION [None]
